FAERS Safety Report 5215452-7 (Version None)
Quarter: 2007Q1

REPORT INFORMATION
  Report Type: 
  Country: None (occurrence: None)
  Receive Date: 20070119
  Receipt Date: 20070119
  Transmission Date: 20070707
  Serious: Yes (Life-Threatening, Hospitalization)
  Sender: FDA-Public Use
  Company Number: None

PATIENT
  Age: 24 Year
  Sex: Female
  Weight: 61.2356 kg

DRUGS (1)
  1. JOLESSA [Suspect]
     Indication: CONTRACEPTION
     Dosage: 1 PILL EVERY DAY  PO
     Route: 048
     Dates: start: 20061115, end: 20061230

REACTIONS (1)
  - VAGINAL HAEMORRHAGE [None]
